FAERS Safety Report 9310180 (Version 1)
Quarter: 2013Q2

REPORT INFORMATION
  Report Type: Spontaneous
  Country: AR (occurrence: AR)
  Receive Date: 20130527
  Receipt Date: 20130527
  Transmission Date: 20140414
  Serious: Yes (Other)
  Sender: FDA-Public Use
  Company Number: AR-AMGEN-ARGSP2013036858

PATIENT
  Age: 66 Year
  Sex: Female

DRUGS (2)
  1. ENBREL [Suspect]
     Indication: RHEUMATOID ARTHRITIS
     Dosage: 50 MG, WEEKLY
     Dates: start: 20081215, end: 2011
  2. ENBREL [Suspect]
     Dosage: 50 MG, WEEKLY
     Dates: start: 201202, end: 201305

REACTIONS (8)
  - Myocardial infarction [Recovered/Resolved]
  - Rheumatoid arthritis [Recovered/Resolved]
  - Spinal compression fracture [Not Recovered/Not Resolved]
  - Cardiac disorder [Unknown]
  - Musculoskeletal disorder [Unknown]
  - Gait disturbance [Unknown]
  - Local swelling [Not Recovered/Not Resolved]
  - Pain in extremity [Not Recovered/Not Resolved]
